FAERS Safety Report 6820298-X (Version None)
Quarter: 2010Q3

REPORT INFORMATION
  Report Type: 
  Country: None (occurrence: None)
  Receive Date: 20100707
  Receipt Date: 20100625
  Transmission Date: 20110219
  Serious: Yes (Other)
  Sender: FDA-Public Use
  Company Number: US-JNJCH-2010015760

PATIENT
  Age: 29 Year
  Sex: Female
  Weight: 84.4 kg

DRUGS (1)
  1. ROLAIDS [Suspect]
     Indication: DYSPEPSIA
     Dosage: TEXT:2 TABLETS AS NEEDED
     Route: 048
     Dates: start: 20100622, end: 20100625

REACTIONS (8)
  - APHAGIA [None]
  - CONDITION AGGRAVATED [None]
  - DIARRHOEA [None]
  - IMPAIRED WORK ABILITY [None]
  - MALAISE [None]
  - NAUSEA [None]
  - PRODUCT QUALITY ISSUE [None]
  - VOMITING [None]
